FAERS Safety Report 19035562 (Version 1)
Quarter: 2021Q1

REPORT INFORMATION
  Report Type: Spontaneous
  Country: US (occurrence: US)
  Receive Date: 20210320
  Receipt Date: 20210320
  Transmission Date: 20210420
  Serious: No
  Sender: FDA-Public Use
  Company Number: US-SA-2021SA081412

PATIENT
  Sex: Female

DRUGS (3)
  1. ALLEGRA ALLERGY [Suspect]
     Active Substance: FEXOFENADINE HYDROCHLORIDE
     Indication: RHINORRHOEA
  2. ALLEGRA ALLERGY [Suspect]
     Active Substance: FEXOFENADINE HYDROCHLORIDE
     Indication: NASAL PRURITUS
  3. ALLEGRA ALLERGY [Suspect]
     Active Substance: FEXOFENADINE HYDROCHLORIDE
     Indication: SNEEZING
     Dosage: DRUG STRUCTURE DOSAGE : 180MG CUT IN HALF DRUG INTERVAL DOSAGE : QD DRUG TREATMENT DURATION: 2 DAYS
     Route: 065
     Dates: start: 20210306

REACTIONS (4)
  - Nausea [Unknown]
  - Pruritus [Unknown]
  - Hypertension [Unknown]
  - Off label use [Unknown]

NARRATIVE: CASE EVENT DATE: 20210308
